FAERS Safety Report 4550601-5 (Version None)
Quarter: 2004Q4

REPORT INFORMATION
  Report Type: 
  Country: None (occurrence: None)
  Receive Date: 20041227
  Receipt Date: 20040921
  Transmission Date: 20050328
  Serious: No
  Sender: FDA-Public Use
  Company Number: 04P-163-0273997-00

PATIENT
  Age: 65 Year
  Sex: Female
  Weight: 56.6996 kg

DRUGS (5)
  1. HUMIRA [Suspect]
     Indication: RHEUMATOID ARTHRITIS
     Dosage: 40 MG, 1 IN 2 WK, SUBCUTANEOUS
     Route: 058
     Dates: start: 20040820
  2. DETROL LA [Concomitant]
  3. VICODIN [Concomitant]
  4. IBUPROFEN [Concomitant]
  5. PREDNISONE [Concomitant]

REACTIONS (4)
  - INJECTION SITE ERYTHEMA [None]
  - INJECTION SITE PRURITUS [None]
  - OEDEMA PERIPHERAL [None]
  - PAIN IN EXTREMITY [None]
